FAERS Safety Report 26188879 (Version 1)
Quarter: 2025Q4

REPORT INFORMATION
  Report Type: Spontaneous
  Country: CN (occurrence: CN)
  Receive Date: 20251222
  Receipt Date: 20251222
  Transmission Date: 20260118
  Serious: Yes (Other)
  Sender: COHERUS
  Company Number: CN-SHANGHAI JUNSHI BIOSCIENCES CO., LTD.-CN2025016933

PATIENT

DRUGS (3)
  1. TORIPALIMAB [Suspect]
     Active Substance: TORIPALIMAB
     Indication: Nasopharyngeal cancer metastatic
     Dosage: 240 MG
     Route: 041
     Dates: start: 20251124, end: 20251124
  2. XGEVA [Concomitant]
     Active Substance: DENOSUMAB
     Indication: Nasopharyngeal cancer metastatic
     Dosage: 120 MG
     Route: 041
     Dates: start: 20251124, end: 20251124
  3. GEMCITABINE HYDROCHLORIDE [Concomitant]
     Active Substance: GEMCITABINE HYDROCHLORIDE
     Indication: Nasopharyngeal cancer metastatic
     Dosage: 1.4 G
     Route: 041
     Dates: start: 20251124, end: 20251124

REACTIONS (3)
  - Chills [Recovering/Resolving]
  - Blood pressure increased [Recovering/Resolving]
  - Hyperpyrexia [Recovering/Resolving]

NARRATIVE: CASE EVENT DATE: 20251124
